FAERS Safety Report 5345209-8 (Version None)
Quarter: 2007Q2

REPORT INFORMATION
  Report Type: 
  Country: None (occurrence: None)
  Receive Date: 20070605
  Receipt Date: 20070524
  Transmission Date: 20071010
  Serious: Yes (Hospitalization, Other)
  Sender: FDA-Public Use
  Company Number: PHEH2007US07599

PATIENT
  Age: 76 Year
  Sex: Male

DRUGS (7)
  1. PROLEUKIN [Suspect]
     Dates: start: 19920101
  2. NEXIUM [Concomitant]
     Dosage: 40 MG, QD
     Route: 048
  3. CARDURA [Concomitant]
     Dosage: 4 MG, QD
  4. LOTREL [Concomitant]
     Dosage: 10/40 MG QD
  5. ATENOLOL [Concomitant]
     Dosage: 100 MG, QD
  6. CALTRATE [Concomitant]
  7. IRON [Concomitant]

REACTIONS (29)
  - ABDOMINAL DISTENSION [None]
  - ANURIA [None]
  - BLADDER DISTENSION [None]
  - BLOOD CALCIUM DECREASED [None]
  - BLOOD CREATININE INCREASED [None]
  - BLOOD PARATHYROID HORMONE DECREASED [None]
  - BLOOD PARATHYROID HORMONE INCREASED [None]
  - BLOOD POTASSIUM INCREASED [None]
  - BLOOD UREA INCREASED [None]
  - CARBON DIOXIDE ABNORMAL [None]
  - CARDIAC MURMUR FUNCTIONAL [None]
  - CATHETER RELATED COMPLICATION [None]
  - CATHETER SITE ERYTHEMA [None]
  - COMPUTERISED TOMOGRAM ABNORMAL [None]
  - DIVERTICULUM INTESTINAL [None]
  - GLOMERULAR FILTRATION RATE DECREASED [None]
  - HAEMODIALYSIS [None]
  - HERNIA [None]
  - HYPERTENSION [None]
  - LIPOMA [None]
  - METASTASES TO RETROPERITONEUM [None]
  - NEPHROSTOMY [None]
  - NUCLEAR MAGNETIC RESONANCE IMAGING ABNORMAL [None]
  - RENAL CYST [None]
  - RENAL FAILURE [None]
  - TENDERNESS [None]
  - URETERIC CANCER METASTATIC [None]
  - URETERIC OBSTRUCTION [None]
  - URINE OUTPUT DECREASED [None]
